FAERS Safety Report 6427929-7 (Version None)
Quarter: 2009Q4

REPORT INFORMATION
  Report Type: 
  Country: None (occurrence: None)
  Receive Date: 20091102
  Receipt Date: 20091016
  Transmission Date: 20100525
  Serious: Yes (Other)
  Sender: FDA-Public Use
  Company Number: A-CH2009-28190

PATIENT

DRUGS (2)
  1. TRACLEER [Suspect]
     Indication: PULMONARY ARTERIAL HYPERTENSION
     Dosage: ORAL
     Route: 048
     Dates: start: 20090701
  2. SILDENAFIL [Concomitant]

REACTIONS (5)
  - CYTOLYTIC HEPATITIS [None]
  - HEADACHE [None]
  - HYPOTENSION [None]
  - RHABDOMYOLYSIS [None]
  - TREMOR [None]
